FAERS Safety Report 8540926-0 (Version None)
Quarter: 2012Q3

REPORT INFORMATION
  Report Type: 
  Country: None (occurrence: None)
  Receive Date: 20120726
  Receipt Date: 20111108
  Transmission Date: 20120928
  Serious: No
  Sender: FDA-Public Use
  Company Number: US-ASTRAZENECA-2011SE47542

PATIENT
  Age: 34 Year
  Sex: Male
  Weight: 81.6 kg

DRUGS (1)
  1. SEROQUEL [Suspect]
     Indication: BIPOLAR DISORDER
     Route: 048

REACTIONS (4)
  - FEELING ABNORMAL [None]
  - TREATMENT NONCOMPLIANCE [None]
  - DRUG DOSE OMISSION [None]
  - BIPOLAR DISORDER [None]
